FAERS Safety Report 4861118-2 (Version None)
Quarter: 2005Q4

REPORT INFORMATION
  Report Type: 
  Country: None (occurrence: None)
  Receive Date: 20051220
  Receipt Date: 20051214
  Transmission Date: 20060501
  Serious: Yes (Life-Threatening)
  Sender: FDA-Public Use
  Company Number: 2005GB02430

PATIENT
  Age: 56 Year
  Sex: Female
  Weight: 62 kg

DRUGS (3)
  1. CRESTOR [Suspect]
     Indication: HYPERCHOLESTEROLAEMIA
     Route: 048
     Dates: start: 20040205, end: 20040501
  2. ESTRADERM [Concomitant]
     Indication: HORMONE REPLACEMENT THERAPY
     Route: 062
     Dates: start: 20050301
  3. ASPIRIN [Concomitant]
     Route: 048
     Dates: start: 20040201, end: 20040401

REACTIONS (3)
  - ACUTE MYELOID LEUKAEMIA [None]
  - DYSPNOEA EXERTIONAL [None]
  - MYELODYSPLASTIC SYNDROME [None]
